FAERS Safety Report 9205002 (Version 1)
Quarter: 2013Q2

REPORT INFORMATION
  Report Type: Spontaneous
  Country: US (occurrence: None)
  Receive Date: 20130401
  Receipt Date: 20130401
  Transmission Date: 20140414
  Serious: Yes (Other)
  Sender: FDA-Public Use
  Company Number: None

PATIENT
  Age: 45 Year
  Sex: Female
  Weight: 71.22 kg

DRUGS (1)
  1. SOTALOL HCL [Suspect]
     Indication: ARRHYTHMIA
     Dates: start: 20130215, end: 20130319

REACTIONS (2)
  - Blood glucose increased [None]
  - Drug interaction [None]
